FAERS Safety Report 19639685 (Version 1)
Quarter: 2021Q3

REPORT INFORMATION
  Report Type: Spontaneous
  Country: US (occurrence: US)
  Receive Date: 20210730
  Receipt Date: 20210730
  Transmission Date: 20211014
  Serious: No
  Sender: FDA-Public Use
  Company Number: US-PERRIGO-21US008213

PATIENT
  Sex: Male

DRUGS (1)
  1. MINOXIDIL. [Suspect]
     Active Substance: MINOXIDIL
     Indication: PRODUCT USED FOR UNKNOWN INDICATION
     Dosage: 1 ML, BID
     Route: 061
     Dates: start: 2021, end: 2021

REACTIONS (2)
  - Application site rash [Unknown]
  - Application site acne [Unknown]

NARRATIVE: CASE EVENT DATE: 2021
